FAERS Safety Report 4481858-7 (Version None)
Quarter: 2004Q3

REPORT INFORMATION
  Report Type: 
  Country: None (occurrence: None)
  Receive Date: 20040921
  Receipt Date: 20030821
  Transmission Date: 20050211
  Serious: Yes (Hospitalization)
  Sender: FDA-Public Use
  Company Number: 163-20785-02120496 (1)

PATIENT
  Age: 42 Year
  Sex: Female

DRUGS (14)
  1. THALOMID [Suspect]
     Indication: MULTIPLE MYELOMA
     Dosage: 200 MG, QD, ORAL
     Route: 048
     Dates: start: 20020713, end: 20020718
  2. THALOMID [Suspect]
     Indication: MULTIPLE MYELOMA
     Dosage: 200 MG, QD, ORAL
     Route: 048
     Dates: start: 20030201
  3. DEXAMETHASONE [Suspect]
     Dosage: 40 MG, ORAL; SEE IMAGE
     Route: 048
     Dates: start: 20020713, end: 20020716
  4. DEXAMETHASONE [Suspect]
     Dosage: 40 MG, ORAL; SEE IMAGE
     Route: 048
     Dates: start: 20020820, end: 20020822
  5. DEXAMETHASONE [Suspect]
     Dosage: 40 MG, ORAL; SEE IMAGE
     Route: 048
     Dates: start: 20021121, end: 20021123
  6. DEXAMETHASONE [Suspect]
     Dosage: 40 MG, ORAL; SEE IMAGE
     Route: 048
     Dates: start: 20030201
  7. CISPLATIN [Suspect]
     Indication: MULTIPLE MYELOMA
     Dosage: 10 MG/M2, INTRAVENOUS
     Route: 042
     Dates: start: 20020713, end: 20020716
  8. CISPLATIN [Suspect]
     Indication: MULTIPLE MYELOMA
     Dosage: 10 MG/M2, INTRAVENOUS
     Route: 042
     Dates: start: 20030201
  9. ADRIAMYCIN PFS [Suspect]
     Indication: MULTIPLE MYELOMA
     Dosage: 10 MG/M2, ORAL
     Route: 048
     Dates: start: 20020713, end: 20020716
  10. ADRIAMYCIN PFS [Suspect]
     Indication: MULTIPLE MYELOMA
     Dosage: 10 MG/M2, ORAL
     Route: 048
     Dates: start: 20030201
  11. CYCLOPHOSPHAMIDE [Suspect]
     Indication: MULTIPLE MYELOMA
     Dosage: 400 MG/M2,
     Dates: start: 20020713, end: 20020716
  12. CYCLOPHOSPHAMIDE [Suspect]
     Indication: MULTIPLE MYELOMA
     Dosage: 400 MG/M2,
     Dates: start: 20030201
  13. ETOPOSIDE [Suspect]
     Indication: MULTIPLE MYELOMA
     Dosage: 40 MG/M2
     Dates: start: 20020713, end: 20020716
  14. MELPHALAN (MELPHALAN) [Suspect]
     Indication: MULTIPLE MYELOMA
     Dosage: 200 MG/M2, INTRAVENOUS
     Route: 042
     Dates: start: 20020820

REACTIONS (2)
  - FEBRILE NEUTROPENIA [None]
  - PNEUMONIA [None]
